FAERS Safety Report 7922444-3 (Version None)
Quarter: 2011Q4

REPORT INFORMATION
  Report Type: 
  Country: None (occurrence: None)
  Receive Date: 20111117
  Receipt Date: 20110120
  Transmission Date: 20120403
  Serious: Yes (Other)
  Sender: FDA-Public Use
  Company Number: US-AMGEN-USASP2011003654

PATIENT
  Age: 11 Year
  Sex: Female

DRUGS (1)
  1. ENBREL [Suspect]
     Indication: PYREXIA
     Dosage: 50 MG, QWK
     Dates: start: 20050505

REACTIONS (3)
  - PYREXIA [None]
  - PHARYNGITIS STREPTOCOCCAL [None]
  - SCARLET FEVER [None]
